FAERS Safety Report 6237980-8 (Version None)
Quarter: 2009Q2

REPORT INFORMATION
  Report Type: 
  Country: None (occurrence: None)
  Receive Date: 20090617
  Receipt Date: 20090604
  Transmission Date: 20091009
  Serious: Yes (Other)
  Sender: FDA-Public Use
  Company Number: POMP-1000565

PATIENT
  Age: 58 Year
  Sex: Female
  Weight: 87 kg

DRUGS (7)
  1. MYOZYME [Suspect]
     Indication: GLYCOGEN STORAGE DISEASE TYPE II
     Dosage: 800 MG, QW, INTRAVENOUS ; 1650 MG, Q2W, INTRAVENOUS
     Route: 042
     Dates: start: 20070327
  2. MYOZYME [Suspect]
     Indication: GLYCOGEN STORAGE DISEASE TYPE II
     Dosage: 800 MG, QW, INTRAVENOUS ; 1650 MG, Q2W, INTRAVENOUS
     Route: 042
     Dates: start: 20090429
  3. MYOZYME [Suspect]
  4. FLECAINIDE ACETATE [Concomitant]
  5. OMEPRAZOLE [Concomitant]
  6. FERROUS GLUCONATE (FERROUS GLUCONATE) [Concomitant]
  7. ARCOXIA [Concomitant]

REACTIONS (5)
  - ABDOMINAL PAIN UPPER [None]
  - BLOOD PRESSURE SYSTOLIC INCREASED [None]
  - DIZZINESS [None]
  - NAUSEA [None]
  - RASH ERYTHEMATOUS [None]
